FAERS Safety Report 26178932 (Version 1)
Quarter: 2025Q4

REPORT INFORMATION
  Report Type: Spontaneous
  Country: US (occurrence: US)
  Receive Date: 20251219
  Receipt Date: 20251219
  Transmission Date: 20260117
  Serious: No
  Sender: TAKEDA
  Company Number: US-TAKEDA-2025TUS114431

PATIENT
  Age: 24 Year
  Sex: Female
  Weight: 77 kg

DRUGS (7)
  1. VYVANSE [Suspect]
     Active Substance: LISDEXAMFETAMINE DIMESYLATE
     Indication: Attention deficit hyperactivity disorder
     Dosage: 30 MILLIGRAM, QD
     Dates: start: 202401
  2. VYVANSE [Suspect]
     Active Substance: LISDEXAMFETAMINE DIMESYLATE
     Dosage: 20 MILLIGRAM
  3. ADDERALL XR [Suspect]
     Active Substance: AMPHETAMINE ASPARTATE\AMPHETAMINE SULFATE\DEXTROAMPHETAMINE SACCHARATE\DEXTROAMPHETAMINE SULFATE
     Indication: Attention deficit hyperactivity disorder
     Dosage: UNK
  4. LISDEXAMFETAMINE DIMESYLATE [Suspect]
     Active Substance: LISDEXAMFETAMINE DIMESYLATE
     Indication: Attention deficit hyperactivity disorder
     Dosage: UNK
  5. SLYND [Concomitant]
     Active Substance: DROSPIRENONE
     Dosage: UNK
  6. AIMOVIG [Concomitant]
     Active Substance: ERENUMAB-AOOE
     Indication: Migraine
     Dosage: UNK
  7. NURTEC ODT [Concomitant]
     Active Substance: RIMEGEPANT SULFATE
     Indication: Migraine
     Dosage: UNK

REACTIONS (13)
  - Drug intolerance [Unknown]
  - Insurance issue [Unknown]
  - Disturbance in attention [Unknown]
  - Depression [Recovered/Resolved]
  - Anger [Unknown]
  - Feeling abnormal [Unknown]
  - Heart rate increased [Recovered/Resolved]
  - Irritability [Unknown]
  - Mood altered [Unknown]
  - Negative thoughts [Unknown]
  - Migraine [Unknown]
  - Flushing [Unknown]
  - Product dose omission issue [Unknown]
